FAERS Safety Report 7161514 (Version 3)
Quarter: 2014Q1

REPORT INFORMATION
  Report Type: Spontaneous
  Country: US (occurrence: US)
  Receive Date: 20091029
  Receipt Date: 20140203
  Transmission Date: 20141002
  Serious: Yes (Other)
  Sender: FDA-Public Use
  Company Number: US-BIOGENIDEC-2009BI029869

PATIENT
  Age: 51 Year
  Sex: Female

DRUGS (1)
  1. TYSABRI [Suspect]
     Indication: MULTIPLE SCLEROSIS
     Route: 042
     Dates: start: 20090721, end: 20090925

REACTIONS (4)
  - Anaphylactic shock [Recovered/Resolved]
  - Drug specific antibody present [Not Recovered/Not Resolved]
  - Treatment failure [Recovered/Resolved]
  - Poor venous access [Unknown]
